FAERS Safety Report 18130317 (Version 7)
Quarter: 2021Q1

REPORT INFORMATION
  Report Type: Report from Study
  Country: None (occurrence: NL)
  Receive Date: 20200810
  Receipt Date: 20210105
  Transmission Date: 20210419
  Serious: Yes (Hospitalization, Other)
  Sender: FDA-Public Use
  Company Number: NL-ABBVIE-20K-114-3440718-00

PATIENT
  Age: 77 Year
  Sex: Female
  Weight: 65 kg

DRUGS (10)
  1. DUODOPA [Suspect]
     Active Substance: CARBIDOPA\LEVODOPA
     Dosage: MD 10.5 CD 2.2 ED 2.0, REMAINS AT 16 HOURS
     Route: 050
     Dates: start: 20200728, end: 2020
  2. MOVICOLON [Concomitant]
     Active Substance: POLYETHYLENE GLYCOL 3350\POTASSIUM CHLORIDE\SODIUM BICARBONATE\SODIUM CHLORIDE
     Indication: ABNORMAL FAECES
  3. DALTEPARIN [Concomitant]
     Active Substance: DALTEPARIN
     Indication: PROPHYLAXIS
     Dosage: STOP IN CASE OF SUFFICIENT MOB
     Route: 058
  4. DUODOPA [Suspect]
     Active Substance: CARBIDOPA\LEVODOPA
     Dosage: DOSAGE AS AGREED. CD: 2.2ML IF NECESSARY 5X2ML EXTRA
     Route: 050
     Dates: start: 2020
  5. DUODOPA [Suspect]
     Active Substance: CARBIDOPA\LEVODOPA
     Dosage: MD 10.5 ML; CD 2.1 ML/H; ED 2.0 ML?REMAINS AT 16 HOURS
     Route: 050
     Dates: start: 2020, end: 2020
  6. SYMMETREL [Concomitant]
     Active Substance: AMANTADINE HYDROCHLORIDE
     Indication: PARKINSON^S DISEASE
  7. CLOZAPINE. [Concomitant]
     Active Substance: CLOZAPINE
     Indication: PRODUCT USED FOR UNKNOWN INDICATION
     Route: 048
     Dates: start: 202008
  8. DUODOPA [Suspect]
     Active Substance: CARBIDOPA\LEVODOPA
     Indication: PARKINSON^S DISEASE
     Route: 050
     Dates: start: 20180222
  9. MADOPAR HBS [Concomitant]
     Active Substance: BENSERAZIDE HYDROCHLORIDE\LEVODOPA
     Indication: PARKINSON^S DISEASE
     Dosage: AFTER DISCONNECTING PUMP?ONE PIECE; 100/25 MG
     Route: 048
  10. BUPRENORPHINE. [Concomitant]
     Active Substance: BUPRENORPHINE
     Indication: PAIN IN EXTREMITY
     Dosage: PLASTER, 5 UG/HOUR; ON THURSDAYS
     Route: 003

REACTIONS (31)
  - Suicidal ideation [Unknown]
  - Abdominal discomfort [Unknown]
  - Osteosclerosis [Unknown]
  - Urinary tract infection [Recovered/Resolved]
  - Atelectasis [Unknown]
  - Peripheral coldness [Unknown]
  - Malaise [Unknown]
  - Hypophagia [Unknown]
  - Muscle rigidity [Unknown]
  - Red blood cells urine positive [Unknown]
  - Loss of personal independence in daily activities [Unknown]
  - White blood cells urine positive [Unknown]
  - Hallucination [Recovered/Resolved]
  - C-reactive protein increased [Unknown]
  - Vitamin B12 deficiency [Unknown]
  - Abdominal pain upper [Unknown]
  - Hallucination [Recovered/Resolved]
  - Pain [Unknown]
  - Abdominal distension [Unknown]
  - Dyskinesia [Unknown]
  - Abnormal behaviour [Not Recovered/Not Resolved]
  - Confusional state [Recovered/Resolved]
  - General physical health deterioration [Unknown]
  - Cachexia [Unknown]
  - Osteoarthritis [Unknown]
  - Gastrostomy [Recovered/Resolved]
  - Wrong technique in device usage process [Recovered/Resolved]
  - Urinary retention [Recovered/Resolved]
  - Oedema peripheral [Unknown]
  - Hypermobility syndrome [Unknown]
  - Delirium [Unknown]

NARRATIVE: CASE EVENT DATE: 2020
